FAERS Safety Report 6155213-8 (Version None)
Quarter: 2009Q2

REPORT INFORMATION
  Report Type: 
  Country: None (occurrence: None)
  Receive Date: 20090410
  Receipt Date: 20090410
  Transmission Date: 20091009
  Serious: Yes (Death)
  Sender: FDA-Public Use
  Company Number: None

PATIENT
  Sex: Male
  Weight: 73 kg

DRUGS (3)
  1. CLOFARABINE [Suspect]
     Indication: ACUTE MYELOID LEUKAEMIA
     Dosage: 54MG -30MG/M2- DAILY IV DRIP
     Route: 041
     Dates: start: 20090402, end: 20090406
  2. CAMPATH [Suspect]
     Dosage: 20MG DAILY INTRAVESICAL
     Route: 043
     Dates: start: 20090402, end: 20090406
  3. MELPHALAN [Concomitant]

REACTIONS (4)
  - CARDIAC ARREST [None]
  - GENERAL PHYSICAL HEALTH DETERIORATION [None]
  - HYPOTENSION [None]
  - PANCYTOPENIA [None]
